FAERS Safety Report 8739155 (Version 2)
Quarter: 2012Q4

REPORT INFORMATION
  Report Type: 
  Country: US (occurrence: US)
  Receive Date: 20120823
  Receipt Date: 20121101
  Transmission Date: 20130627
  Serious: Yes (Other)
  Sender: FDA-Public Use
  Company Number: US-ELI_LILLY_AND_COMPANY-US201208004922

PATIENT
  Age: 55 Year
  Sex: Male
  Weight: 63.49 kg

DRUGS (3)
  1. CYMBALTA [Suspect]
     Indication: NEUROPATHY PERIPHERAL
     Dosage: 60 mg, each evening
     Dates: start: 20111012, end: 20120422
  2. SEPTRA DS [Concomitant]
  3. LYRICA [Concomitant]
     Dosage: 20 DF, qd

REACTIONS (2)
  - Stevens-Johnson syndrome [Recovered/Resolved]
  - Off label use [Recovered/Resolved]
